FAERS Safety Report 4458418-7 (Version None)
Quarter: 2004Q3

REPORT INFORMATION
  Report Type: 
  Country: None (occurrence: None)
  Receive Date: 20040924
  Receipt Date: 20040916
  Transmission Date: 20050211
  Serious: Yes (Hospitalization)
  Sender: FDA-Public Use
  Company Number: FR-MERCK-0409FRA00077

PATIENT
  Age: 10 Year
  Sex: Female

DRUGS (3)
  1. AMOXICILLIN [Concomitant]
     Indication: INFECTION
     Route: 065
     Dates: start: 20010101, end: 20010101
  2. CEFOTAXIME SODIUM [Concomitant]
     Indication: INFECTION
     Route: 065
     Dates: start: 20010101, end: 20010101
  3. PRIMAXIN [Suspect]
     Indication: CHOLECYSTITIS
     Route: 041
     Dates: start: 20030201, end: 20030201

REACTIONS (1)
  - PATHOGEN RESISTANCE [None]
